FAERS Safety Report 6727453-8 (Version None)
Quarter: 2010Q2

REPORT INFORMATION
  Report Type: 
  Country: None (occurrence: None)
  Receive Date: 20100517
  Receipt Date: 20100510
  Transmission Date: 20101027
  Serious: Yes (Hospitalization)
  Sender: FDA-Public Use
  Company Number: PHHO2010DE07048

PATIENT
  Sex: Female
  Weight: 61 kg

DRUGS (1)
  1. CGS 20267 T30748+TAB [Suspect]
     Indication: BREAST CANCER
     Route: 048

REACTIONS (2)
  - CHOLELITHIASIS [None]
  - CHOLELITHOTOMY [None]
